APPROVED DRUG PRODUCT: KETOROLAC TROMETHAMINE
Active Ingredient: KETOROLAC TROMETHAMINE
Strength: 10MG
Dosage Form/Route: TABLET;ORAL
Application: A074754 | Product #001 | TE Code: AB
Applicant: TEVA PHARMACEUTICALS USA INC
Approved: May 16, 1997 | RLD: No | RS: Yes | Type: RX